FAERS Safety Report 5504540-3 (Version None)
Quarter: 2007Q4

REPORT INFORMATION
  Report Type: 
  Country: None (occurrence: None)
  Receive Date: 20071101
  Receipt Date: 20071027
  Transmission Date: 20080405
  Serious: Yes (Disabling)
  Sender: FDA-Public Use
  Company Number: DZ-MERCK-0710USA05988

PATIENT
  Age: 77 Year
  Sex: Female

DRUGS (1)
  1. FOSAMAX [Suspect]
     Indication: OSTEOPOROSIS
     Route: 048

REACTIONS (7)
  - AMNESIA [None]
  - DISORIENTATION [None]
  - FEAR [None]
  - HYPERCALCAEMIA [None]
  - MUSCLE ATROPHY [None]
  - MUSCLE DISORDER [None]
  - PYREXIA [None]
